FAERS Safety Report 23865264 (Version 1)
Quarter: 2024Q2

REPORT INFORMATION
  Report Type: Other
  Country: CA (occurrence: CA)
  Receive Date: 20240517
  Receipt Date: 20240517
  Transmission Date: 20240716
  Serious: Yes (Death, Other)
  Sender: FDA-Public Use
  Company Number: CA-APOTEX-2024AP005757

PATIENT
  Age: 61 Year
  Sex: Male

DRUGS (1)
  1. ACETAMINOPHEN [Suspect]
     Active Substance: ACETAMINOPHEN
     Indication: Malaise
     Dosage: 20 DOSAGE FORM, QD
     Route: 048

REACTIONS (14)
  - Abdominal pain upper [Fatal]
  - Asthenia [Fatal]
  - Blood lactic acid increased [Fatal]
  - Chest pain [Fatal]
  - Confusional state [Fatal]
  - Dyspnoea [Fatal]
  - Haematemesis [Fatal]
  - Fatigue [Fatal]
  - Hepatotoxicity [Fatal]
  - International normalised ratio abnormal [Fatal]
  - Malaise [Fatal]
  - Metabolic acidosis [Fatal]
  - Hepatic failure [Fatal]
  - Multiple organ dysfunction syndrome [Fatal]
